FAERS Safety Report 19605629 (Version 3)
Quarter: 2021Q3

REPORT INFORMATION
  Report Type: Other
  Country: US (occurrence: US)
  Receive Date: 20210723
  Receipt Date: 20210915
  Transmission Date: 20211014
  Serious: Yes (Death)
  Sender: FDA-Public Use
  Company Number: US-ROCHE-2873735

PATIENT
  Age: 16 Year
  Sex: Female
  Weight: 43.3 kg

DRUGS (11)
  1. ETANERCEPT [Concomitant]
     Active Substance: ETANERCEPT
     Dates: start: 20190506, end: 20190618
  2. TOCILIZUMAB. [Suspect]
     Active Substance: TOCILIZUMAB
     Route: 065
     Dates: start: 20191021, end: 202008
  3. ADALIMUMAB [Concomitant]
     Active Substance: ADALIMUMAB
     Dates: start: 20181115, end: 201905
  4. NAPROXEN. [Concomitant]
     Active Substance: NAPROXEN
     Dates: start: 20190225, end: 20190506
  5. TOCILIZUMAB. [Suspect]
     Active Substance: TOCILIZUMAB
     Indication: JUVENILE IDIOPATHIC ARTHRITIS
     Route: 065
     Dates: start: 20190618, end: 20191021
  6. PREDNISONE. [Concomitant]
     Active Substance: PREDNISONE
     Indication: JUVENILE IDIOPATHIC ARTHRITIS
     Dates: start: 2018
  7. METHOTREXATE. [Concomitant]
     Active Substance: METHOTREXATE
     Dates: start: 20181112
  8. FOLIC ACID. [Concomitant]
     Active Substance: FOLIC ACID
     Dates: start: 20190225
  9. ETANERCEPT [Concomitant]
     Active Substance: ETANERCEPT
     Dates: start: 20181115, end: 201905
  10. ONDANSETRON [Concomitant]
     Active Substance: ONDANSETRON
     Indication: NAUSEA
     Dates: start: 2019
  11. TOFACITINIB [Concomitant]
     Active Substance: TOFACITINIB
     Dates: start: 20210412

REACTIONS (1)
  - Death [Fatal]

NARRATIVE: CASE EVENT DATE: 202107
